FAERS Safety Report 8977480 (Version 1)
Quarter: 2012Q4

REPORT INFORMATION
  Report Type: 
  Country: CY (occurrence: CY)
  Receive Date: 20121220
  Receipt Date: 20121220
  Transmission Date: 20130627
  Serious: Yes (Death, Hospitalization)
  Sender: FDA-Public Use
  Company Number: CY-ALEXION-A201202411

PATIENT
  Age: 5 Year
  Sex: Female
  Weight: 18.5 kg

DRUGS (16)
  1. SOLIRIS 300MG [Suspect]
     Indication: HAEMOLYTIC URAEMIC SYNDROME
     Dosage: 600 mg, UNK
     Dates: start: 20120622
  2. SOLIRIS 300MG [Suspect]
     Dosage: 900 mg, UNK
  3. OMEPRAZOLE [Concomitant]
     Dosage: 10 mg, qd
     Route: 048
  4. FOLIC ACID [Concomitant]
     Dosage: 2.5 mg, qd
     Route: 048
  5. DIAZEPAM [Concomitant]
     Dosage: 8 mg, qid
     Route: 048
  6. METOCLOPRAMIDE [Concomitant]
     Dosage: 2 mg, tid
     Route: 048
  7. PREDNISOLONE [Concomitant]
     Dosage: 10 mg, qd
     Route: 048
  8. CAPTOPRIL [Concomitant]
     Dosage: 6 mg, tid
     Route: 048
  9. SILDENAFIL [Concomitant]
     Dosage: 15 mg, qid
     Route: 048
  10. FLUCONAZOLE [Concomitant]
     Dosage: 100 mg, qd
     Route: 042
  11. TRIMETHOPRIM SULFAMETHOXAZOLE [Concomitant]
     Indication: PNEUMOCYSTIS JIROVECI PNEUMONIA
     Dosage: 160 mg, TIW
     Route: 048
  12. CIPROFLOXACIN [Concomitant]
     Dosage: 250 mg, qd
     Route: 048
  13. EPREX [Concomitant]
     Dosage: 10000 IU, TIW
     Route: 058
  14. LUMINAL [Concomitant]
     Dosage: 55 mg, bid
     Route: 048
  15. OXYCODONE [Concomitant]
     Dosage: 7 mg, qid
     Route: 048
  16. COLISTIN [Concomitant]
     Dosage: 250000 IU, tid
     Route: 042

REACTIONS (5)
  - Pseudomonas infection [Fatal]
  - Candidiasis [Fatal]
  - Device related infection [Fatal]
  - Hypertension [Fatal]
  - Pulmonary hypertension [Fatal]
